FAERS Safety Report 4502851-1 (Version None)
Quarter: 2004Q4

REPORT INFORMATION
  Report Type: 
  Country: None (occurrence: None)
  Receive Date: 20041116
  Receipt Date: 20041116
  Transmission Date: 20050328
  Serious: Yes (Other)
  Sender: FDA-Public Use
  Company Number: None

PATIENT
  Sex: Female
  Weight: 63.5036 kg

DRUGS (10)
  1. VIOXX [Suspect]
     Indication: CHRONIC FATIGUE SYNDROME
     Dosage: 12.5 MG TWICE A DAY ORAL
     Route: 048
     Dates: start: 19990711, end: 20000503
  2. VIOXX [Suspect]
     Indication: FIBROMYALGIA
     Dosage: 12.5 MG TWICE A DAY ORAL
     Route: 048
     Dates: start: 19990711, end: 20000503
  3. VIOXX [Suspect]
     Indication: OSTEOARTHRITIS
     Dosage: 12.5 MG TWICE A DAY ORAL
     Route: 048
     Dates: start: 19990711, end: 20000503
  4. CELEXA [Concomitant]
  5. CARTIA XT [Concomitant]
  6. CLONAZEPAM [Concomitant]
  7. CARDIZEM CD [Concomitant]
  8. DEXEDRINE [Concomitant]
  9. MIACALCIN SPRAY [Concomitant]
  10. WELLBUTRIN SR [Concomitant]

REACTIONS (3)
  - DYSGRAPHIA [None]
  - PARKINSON'S DISEASE [None]
  - TREMOR [None]
